FAERS Safety Report 7037490-4 (Version None)
Quarter: 2010Q4

REPORT INFORMATION
  Report Type: 
  Country: None (occurrence: None)
  Receive Date: 20101011
  Receipt Date: 20101006
  Transmission Date: 20110411
  Serious: Yes (Other)
  Sender: FDA-Public Use
  Company Number: A0885237A

PATIENT
  Age: 67 Year
  Sex: Female

DRUGS (12)
  1. ADVAIR DISKUS 100/50 [Suspect]
     Indication: ASTHMA
     Dosage: 1PUFF TWICE PER DAY
     Route: 055
  2. SPIRIVA [Concomitant]
  3. VENTOLIN [Concomitant]
  4. IRON [Concomitant]
  5. PLAVIX [Concomitant]
  6. FAMOTIDINE [Concomitant]
  7. DILANTIN [Concomitant]
  8. ZOCOR [Concomitant]
  9. SINGULAIR [Concomitant]
  10. ASPIRIN [Concomitant]
  11. TOPROL-XL [Concomitant]
  12. IMDUR [Concomitant]

REACTIONS (2)
  - ASTHMA [None]
  - PRODUCT QUALITY ISSUE [None]
